FAERS Safety Report 24218262 (Version 4)
Quarter: 2024Q4

REPORT INFORMATION
  Report Type: Spontaneous
  Country: US (occurrence: US)
  Receive Date: 20240816
  Receipt Date: 20241003
  Transmission Date: 20250115
  Serious: No
  Sender: LUPIN
  Company Number: US-LUPIN PHARMACEUTICALS INC.-2024-07294

PATIENT

DRUGS (1)
  1. TEMAZEPAM [Suspect]
     Active Substance: TEMAZEPAM
     Indication: Insomnia
     Dosage: UNK, HS
     Route: 065

REACTIONS (4)
  - Insomnia [Unknown]
  - Skin disorder [Unknown]
  - Wrong technique in product usage process [Unknown]
  - Drug ineffective [Unknown]
